FAERS Safety Report 7539878-1 (Version None)
Quarter: 2011Q2

REPORT INFORMATION
  Report Type: 
  Country: None (occurrence: None)
  Receive Date: 20110610
  Receipt Date: 20110601
  Transmission Date: 20111010
  Serious: Yes (Disabling, Other)
  Sender: FDA-Public Use
  Company Number: JP-SANOFI-AVENTIS-2009SA008593

PATIENT
  Age: 70 Year
  Sex: Female
  Weight: 77 kg

DRUGS (2)
  1. ANAESTHETICS, GENERAL [Suspect]
     Route: 008
     Dates: start: 20091208, end: 20091210
  2. ENOXAPARIN SODIUM [Suspect]
     Route: 058
     Dates: start: 20091209, end: 20091209

REACTIONS (4)
  - EXTRADURAL HAEMATOMA [None]
  - BACK PAIN [None]
  - HYPOAESTHESIA [None]
  - ASTHENIA [None]
